FAERS Safety Report 5762007-1 (Version None)
Quarter: 2008Q2

REPORT INFORMATION
  Report Type: 
  Country: None (occurrence: None)
  Receive Date: 20080603
  Receipt Date: 20080522
  Transmission Date: 20081010
  Serious: Yes (Hospitalization)
  Sender: FDA-Public Use
  Company Number: CAP08000179

PATIENT
  Age: 62 Year
  Sex: Female

DRUGS (3)
  1. DIDROCAL(ETIDRONATE DISODIUM/CALCIUM CARBONATE CYCLICAL) TABLET, 400/1 [Suspect]
     Indication: OSTEOPOROSIS
     Dosage: 1 TABLET DAILY CYCLIC, ORAL
     Route: 048
     Dates: start: 20030101
  2. THYROID HORMONES [Concomitant]
  3. LEVOTHYROXINE SODIUM [Concomitant]

REACTIONS (6)
  - CONVULSION [None]
  - FALL [None]
  - GLOSSODYNIA [None]
  - MASTICATION DISORDER [None]
  - ORAL PAIN [None]
  - SPINAL FRACTURE [None]
